FAERS Safety Report 11907203 (Version 1)
Quarter: 2016Q1

REPORT INFORMATION
  Report Type: Report from Study
  Country: US (occurrence: US)
  Receive Date: 20160111
  Receipt Date: 20160111
  Transmission Date: 20160526
  Serious: Yes (Other)
  Sender: FDA-Public Use
  Company Number: US-ELI_LILLY_AND_COMPANY-US201401008112

PATIENT
  Sex: Female
  Weight: 96.6 kg

DRUGS (1)
  1. FORTEO [Suspect]
     Active Substance: TERIPARATIDE
     Indication: OSTEOPOROSIS
     Dosage: UNK, QD
     Route: 065
     Dates: start: 20131101

REACTIONS (12)
  - Tibia fracture [Unknown]
  - Malaise [Unknown]
  - Myocardial infarction [Unknown]
  - Rib fracture [Unknown]
  - Post-traumatic stress disorder [Unknown]
  - Wrist fracture [Unknown]
  - Renal impairment [Unknown]
  - Drug dose omission [Unknown]
  - Femur fracture [Unknown]
  - Weight decreased [Unknown]
  - Blood glucose increased [Unknown]
  - Atrial fibrillation [Unknown]

NARRATIVE: CASE EVENT DATE: 2014
